APPROVED DRUG PRODUCT: OCTREOSCAN
Active Ingredient: INDIUM IN-111 PENTETREOTIDE KIT
Strength: 3mCi/ML
Dosage Form/Route: INJECTABLE;INJECTION
Application: N020314 | Product #001 | TE Code: AP
Applicant: CURIUM US LLC
Approved: Jun 2, 1994 | RLD: Yes | RS: Yes | Type: RX